FAERS Safety Report 12166222 (Version 2)
Quarter: 2016Q2

REPORT INFORMATION
  Report Type: Spontaneous
  Country: US (occurrence: US)
  Receive Date: 20160309
  Receipt Date: 20160406
  Transmission Date: 20160815
  Serious: No
  Sender: FDA-Public Use
  Company Number: US-ACTELION PHARMACEUTICALS US, INC.-A-US2016-131943

PATIENT
  Age: 46 Year
  Sex: Female

DRUGS (3)
  1. RIOCIGUAT [Concomitant]
     Active Substance: RIOCIGUAT
  2. TRACLEER [Suspect]
     Active Substance: BOSENTAN
     Indication: PULMONARY ARTERIAL HYPERTENSION
     Dosage: UNK
     Route: 048
     Dates: start: 20151228
  3. TREPROSTINIL DIOLAMIN [Concomitant]
     Active Substance: TREPROSTINIL DIOLAMINE

REACTIONS (2)
  - Laryngitis [Unknown]
  - Headache [Unknown]
